FAERS Safety Report 11662816 (Version 2)
Quarter: 2017Q2

REPORT INFORMATION
  Report Type: Spontaneous
  Country: US (occurrence: US)
  Receive Date: 20151027
  Receipt Date: 20170509
  Transmission Date: 20170829
  Serious: No
  Sender: FDA-Public Use
  Company Number: US-MEDA-2013100057

PATIENT
  Age: 69 Year
  Sex: Male
  Weight: 129 kg

DRUGS (6)
  1. LANTUS [Concomitant]
     Active Substance: INSULIN GLARGINE
     Indication: DIABETES MELLITUS
     Route: 051
     Dates: start: 1990
  2. METFORMIN [Concomitant]
     Active Substance: METFORMIN HYDROCHLORIDE
     Indication: DIABETES MELLITUS
     Route: 048
     Dates: start: 1982
  3. PREDNISOLONE. [Concomitant]
     Active Substance: PREDNISOLONE
     Indication: SEASONAL ALLERGY
     Dosage: 4 TABLETS FIRST DAY; 3 TABLETS FOR 2 DAYS; 2 TABLETS FOR 3 DAYS; ONE ON 7TH DAY
     Route: 048
     Dates: start: 2013
  4. DYMISTA [Suspect]
     Active Substance: AZELASTINE HYDROCHLORIDE\FLUTICASONE PROPIONATE
     Indication: SEASONAL ALLERGY
     Dates: start: 20131010
  5. ATENOLOL. [Concomitant]
     Active Substance: ATENOLOL
     Indication: HYPERTENSION
     Route: 048
     Dates: start: 2003
  6. HUMALOG [Concomitant]
     Active Substance: INSULIN LISPRO
     Indication: DIABETES MELLITUS
     Dosage: 1 UNIT FOR EVERY 5 GRAMS OF CARBOHYDRATE
     Route: 051
     Dates: start: 1990

REACTIONS (2)
  - Dysgeusia [Recovered/Resolved]
  - Inappropriate schedule of drug administration [Recovered/Resolved]

NARRATIVE: CASE EVENT DATE: 201310
